FAERS Safety Report 9128666 (Version 2)
Quarter: 2013Q1

REPORT INFORMATION
  Report Type: Spontaneous
  Country: JP (occurrence: JP)
  Receive Date: 20130228
  Receipt Date: 20130326
  Transmission Date: 20140127
  Serious: Yes (Other)
  Sender: FDA-Public Use
  Company Number: PHHY2013JP018690

PATIENT
  Sex: Male

DRUGS (3)
  1. RITALIN [Suspect]
     Indication: NARCOLEPSY
     Dosage: 50 MG DAILY
  2. RITALIN [Suspect]
     Dosage: 50 MG, DAILY (3 TABLETS IN THE MORNING AND 2 TABLETS DURING THE DAYTIME)
     Route: 048
  3. BETANAMIN [Concomitant]
     Indication: NARCOLEPSY

REACTIONS (4)
  - Road traffic accident [Unknown]
  - Narcolepsy [Unknown]
  - Somnolence [Unknown]
  - Drug ineffective [Unknown]
